FAERS Safety Report 10206900 (Version 1)
Quarter: 2014Q2

REPORT INFORMATION
  Report Type: Spontaneous
  Country: US (occurrence: US)
  Receive Date: 20140530
  Receipt Date: 20140530
  Transmission Date: 20141212
  Serious: No
  Sender: FDA-Public Use
  Company Number: US-BAYER-2014-078572

PATIENT
  Age: 21 Year
  Sex: Female

DRUGS (1)
  1. MIRENA [Suspect]
     Dosage: 20 MCG/24HR, CONT
     Route: 015
     Dates: start: 201009, end: 20111007

REACTIONS (4)
  - Ovarian cyst [Recovered/Resolved]
  - Pelvic pain [Recovered/Resolved]
  - Injury [Recovered/Resolved]
  - Abdominal pain lower [Recovered/Resolved]
